FAERS Safety Report 12286736 (Version 3)
Quarter: 2016Q2

REPORT INFORMATION
  Report Type: Spontaneous
  Country: US (occurrence: US)
  Receive Date: 20160420
  Receipt Date: 20160621
  Transmission Date: 20160815
  Serious: No
  Sender: FDA-Public Use
  Company Number: US-PFIZER INC-2016221714

PATIENT
  Age: 59 Year
  Sex: Male
  Weight: 108.86 kg

DRUGS (7)
  1. LYRICA [Suspect]
     Active Substance: PREGABALIN
     Indication: LACERATION
     Dosage: 150 MG, 3X/DAY
     Route: 048
     Dates: end: 201510
  2. OXYCODONE [Concomitant]
     Active Substance: OXYCODONE
     Indication: INTERVERTEBRAL DISC DEGENERATION
     Dosage: 1 DF 7.5 MG, AS NEEDED
     Route: 048
     Dates: start: 201209
  3. LYRICA [Suspect]
     Active Substance: PREGABALIN
     Indication: MUSCLE SPASMS
     Dosage: 200 MG, 1X/DAY
     Dates: end: 201603
  4. ACETAMINOPHEN. [Concomitant]
     Active Substance: ACETAMINOPHEN
     Dosage: 325 MG, UNK
  5. LYRICA [Suspect]
     Active Substance: PREGABALIN
     Indication: BACK PAIN
     Dosage: 60MG, 1X/DAY (ONE CAPSULE A DAY FOR ONE WEEK)
     Route: 048
     Dates: start: 2015
  6. LYRICA [Suspect]
     Active Substance: PREGABALIN
     Indication: NEURALGIA
  7. OXYCODONE [Concomitant]
     Active Substance: OXYCODONE
     Dosage: 7.5 MG, UNK

REACTIONS (7)
  - Throat tightness [Recovered/Resolved]
  - Somnolence [Recovered/Resolved]
  - Feeling jittery [Recovering/Resolving]
  - Grip strength decreased [Recovered/Resolved]
  - Muscle spasms [Recovered/Resolved]
  - Intentional product use issue [Recovered/Resolved]
  - Intentional product misuse [Recovered/Resolved]

NARRATIVE: CASE EVENT DATE: 2015
